FAERS Safety Report 8991093 (Version 1)
Quarter: 2012Q4

REPORT INFORMATION
  Report Type: 
  Country: US (occurrence: US)
  Receive Date: 20121231
  Receipt Date: 20121231
  Transmission Date: 20130627
  Serious: Yes (Other)
  Sender: FDA-Public Use
  Company Number: US-BRISTOL-MYERS SQUIBB COMPANY-17230970

PATIENT
  Age: 76 Year
  Sex: Male

DRUGS (1)
  1. YERVOY [Suspect]
     Dosage: Inf: 11-oct-12, 1-Nov-2012, 04-Dec-2012
     Route: 042
     Dates: start: 20121011

REACTIONS (4)
  - Femur fracture [Unknown]
  - Fatigue [Unknown]
  - Decreased appetite [Unknown]
  - Amnesia [Unknown]
